FAERS Safety Report 15365681 (Version 1)
Quarter: 2018Q3

REPORT INFORMATION
  Report Type: Spontaneous
  Country: US (occurrence: US)
  Receive Date: 20180910
  Receipt Date: 20180910
  Transmission Date: 20181010
  Serious: No
  Sender: FDA-Public Use
  Company Number: US-ASTRAZENECA-2018SF03734

PATIENT
  Sex: Female

DRUGS (3)
  1. BYDUREON [Suspect]
     Active Substance: EXENATIDE
     Indication: BLOOD GLUCOSE ABNORMAL
     Route: 065
  2. BYDUREON BCISE [Suspect]
     Active Substance: EXENATIDE
     Indication: BLOOD GLUCOSE ABNORMAL
     Route: 065
     Dates: start: 201807
  3. BYETTA [Suspect]
     Active Substance: EXENATIDE
     Indication: BLOOD GLUCOSE ABNORMAL
     Dosage: UNKNOWN
     Route: 065

REACTIONS (5)
  - Malaise [Recovering/Resolving]
  - Injection site pain [Recovered/Resolved]
  - Decreased appetite [Recovered/Resolved]
  - Blood glucose increased [Not Recovered/Not Resolved]
  - Blood glucose abnormal [Recovered/Resolved]

NARRATIVE: CASE EVENT DATE: 201808
